FAERS Safety Report 13436413 (Version 1)
Quarter: 2017Q2

REPORT INFORMATION
  Report Type: Spontaneous
  Country: BR (occurrence: BR)
  Receive Date: 20170413
  Receipt Date: 20170413
  Transmission Date: 20170830
  Serious: Yes (Other)
  Sender: FDA-Public Use
  Company Number: BR-PFIZER INC-2017157964

PATIENT
  Age: 70 Year
  Sex: Female

DRUGS (2)
  1. CELEBRA [Suspect]
     Active Substance: CELECOXIB
     Indication: FOOT FRACTURE
     Dosage: UNK
     Dates: start: 2015
  2. CELEBRA [Suspect]
     Active Substance: CELECOXIB
     Indication: PAIN

REACTIONS (3)
  - Fall [Unknown]
  - Pain [Unknown]
  - Spinal fracture [Unknown]

NARRATIVE: CASE EVENT DATE: 20170331
